FAERS Safety Report 10439618 (Version 1)
Quarter: 2014Q3

REPORT INFORMATION
  Report Type: Spontaneous
  Country: US (occurrence: US)
  Receive Date: 20140908
  Receipt Date: 20140908
  Transmission Date: 20150326
  Serious: No
  Sender: FDA-Public Use
  Company Number: US-BRISTOL-MYERS SQUIBB COMPANY-20640231

PATIENT
  Age: 64 Year
  Sex: Female
  Weight: 100.04 kg

DRUGS (14)
  1. SINGULAIR [Concomitant]
     Active Substance: MONTELUKAST SODIUM
  2. FLUTICASONE PROPIONATE. [Concomitant]
     Active Substance: FLUTICASONE PROPIONATE
  3. CALCIUM [Concomitant]
     Active Substance: CALCIUM
  4. FUROSEMIDE. [Concomitant]
     Active Substance: FUROSEMIDE
  5. EPIPEN [Concomitant]
     Active Substance: EPINEPHRINE
  6. PLAVIX [Concomitant]
     Active Substance: CLOPIDOGREL BISULFATE
  7. CYMBALTA [Concomitant]
     Active Substance: DULOXETINE HYDROCHLORIDE
  8. ALBUTEROL SULFATE. [Concomitant]
     Active Substance: ALBUTEROL SULFATE
  9. DIOVAN [Concomitant]
     Active Substance: VALSARTAN
  10. ADVAIR HFA [Concomitant]
     Active Substance: FLUTICASONE PROPIONATE\SALMETEROL XINAFOATE
  11. PREDNISONE. [Concomitant]
     Active Substance: PREDNISONE
  12. ABILIFY [Suspect]
     Active Substance: ARIPIPRAZOLE
  13. PANTOPRAZOLE [Concomitant]
     Active Substance: PANTOPRAZOLE SODIUM
  14. NIFEDIAC CC [Concomitant]
     Active Substance: NIFEDIPINE

REACTIONS (1)
  - Weight increased [Unknown]
